FAERS Safety Report 23127197 (Version 1)
Quarter: 2023Q4

REPORT INFORMATION
  Report Type: Report from Study
  Country: US (occurrence: RO)
  Receive Date: 20231030
  Receipt Date: 20231030
  Transmission Date: 20240110
  Serious: Yes (Hospitalization)
  Sender: FDA-Public Use
  Company Number: RO-ABBVIE-5467998

PATIENT
  Age: 44 Year
  Sex: Female

DRUGS (1)
  1. GLECAPREVIR\PIBRENTASVIR [Suspect]
     Active Substance: GLECAPREVIR\PIBRENTASVIR
     Indication: Chronic hepatitis C
     Dosage: 300 MG/120 MG
     Route: 048
     Dates: start: 20231012

REACTIONS (4)
  - Arthralgia [Recovering/Resolving]
  - Headache [Recovering/Resolving]
  - Gait disturbance [Recovering/Resolving]
  - Fatigue [Recovering/Resolving]

NARRATIVE: CASE EVENT DATE: 20231012
